FAERS Safety Report 6751005-7 (Version None)
Quarter: 2010Q2

REPORT INFORMATION
  Report Type: 
  Country: None (occurrence: None)
  Receive Date: 20100602
  Receipt Date: 20100518
  Transmission Date: 20101027
  Serious: Yes (Hospitalization)
  Sender: FDA-Public Use
  Company Number: FR-JNJFOC-20100510851

PATIENT
  Sex: Male

DRUGS (7)
  1. TOPALGIC [Suspect]
     Indication: PAIN
     Route: 048
  2. TRIATEC [Suspect]
     Indication: DRUG USE FOR UNKNOWN INDICATION
     Route: 048
  3. PLAVIX [Concomitant]
  4. CORTANCYL [Concomitant]
  5. OMEPRAZOLE [Concomitant]
  6. INDOCIN [Concomitant]
  7. CRESTOR [Concomitant]

REACTIONS (2)
  - DERMATOMYOSITIS [None]
  - TOXIC EPIDERMAL NECROLYSIS [None]
